FAERS Safety Report 19408816 (Version 2)
Quarter: 2021Q3

REPORT INFORMATION
  Report Type: Spontaneous
  Country: US (occurrence: US)
  Receive Date: 20210613
  Receipt Date: 20210824
  Transmission Date: 20211014
  Serious: No
  Sender: FDA-Public Use
  Company Number: US-BIOGEN-2021BI01016017

PATIENT
  Age: 56 Year
  Sex: Female

DRUGS (14)
  1. FOSAMAX [Concomitant]
     Active Substance: ALENDRONATE SODIUM
     Route: 065
  2. DETROL LA [Concomitant]
     Active Substance: TOLTERODINE TARTRATE
     Route: 065
  3. LYRICA [Concomitant]
     Active Substance: PREGABALIN
     Route: 065
  4. TECFIDERA [Suspect]
     Active Substance: DIMETHYL FUMARATE
     Indication: MULTIPLE SCLEROSIS
     Route: 065
     Dates: start: 20170912
  5. KLONOPIN [Concomitant]
     Active Substance: CLONAZEPAM
     Route: 065
  6. FIORICET [Concomitant]
     Active Substance: ACETAMINOPHEN\BUTALBITAL\CAFFEINE
     Route: 065
  7. TOPAMAX [Concomitant]
     Active Substance: TOPIRAMATE
     Route: 065
  8. MS CONTIN [Concomitant]
     Active Substance: MORPHINE SULFATE
     Route: 065
  9. ZANAFLEX [Concomitant]
     Active Substance: TIZANIDINE HYDROCHLORIDE
     Route: 065
  10. LOPRESSOR [Concomitant]
     Active Substance: METOPROLOL TARTRATE
     Route: 065
  11. CYMBALTA [Concomitant]
     Active Substance: DULOXETINE HYDROCHLORIDE
     Route: 065
  12. ZOCOR [Concomitant]
     Active Substance: SIMVASTATIN
     Route: 065
  13. VIVELLE?DOT [Concomitant]
     Active Substance: ESTRADIOL
     Route: 065
  14. AMANTADINE HCL [Concomitant]
     Active Substance: AMANTADINE HYDROCHLORIDE
     Route: 065

REACTIONS (5)
  - Joint injury [Recovered/Resolved]
  - Flushing [Not Recovered/Not Resolved]
  - Back injury [Recovered/Resolved]
  - Prescribed underdose [Unknown]
  - Fall [Recovered/Resolved]

NARRATIVE: CASE EVENT DATE: 201709
